FAERS Safety Report 9607618 (Version 3)
Quarter: 2014Q2

REPORT INFORMATION
  Report Type: Report from Study
  Country: US (occurrence: US)
  Receive Date: 20131009
  Receipt Date: 20140521
  Transmission Date: 20141212
  Serious: Yes (Hospitalization)
  Sender: FDA-Public Use
  Company Number: PHEH2013US018207

PATIENT
  Age: 31 Year
  Sex: Female
  Weight: 49.43 kg

DRUGS (2)
  1. TOBI PODHALER [Suspect]
     Indication: CYSTIC FIBROSIS
     Dosage: 28 MG, BID
     Route: 055
     Dates: start: 2013
  2. TOBI PODHALER [Suspect]
     Indication: PSEUDOMONAS INFECTION
     Dosage: 112 MG, BID
     Route: 055
     Dates: start: 201308, end: 201308

REACTIONS (6)
  - Malaise [Recovering/Resolving]
  - Pulmonary function test decreased [Recovered/Resolved]
  - Forced expiratory volume decreased [Recovering/Resolving]
  - Forced vital capacity decreased [Unknown]
  - Cystic fibrosis [Recovering/Resolving]
  - Chest discomfort [Recovered/Resolved]
